FAERS Safety Report 6042115-0 (Version None)
Quarter: 2009Q1

REPORT INFORMATION
  Report Type: 
  Country: None (occurrence: None)
  Receive Date: 20090116
  Receipt Date: 20080520
  Transmission Date: 20090719
  Serious: No
  Sender: FDA-Public Use
  Company Number: US-BAYER-200812248BCC

PATIENT
  Age: 76 Year
  Sex: Male
  Weight: 96 kg

DRUGS (1)
  1. ALEVE (CAPLET) [Suspect]
     Indication: ANALGESIA
     Dosage: AS USED: 220 MG  UNIT DOSE: 220 MG
     Route: 048
     Dates: start: 20080520

REACTIONS (1)
  - ARTHRALGIA [None]
